FAERS Safety Report 7767716-0 (Version None)
Quarter: 2011Q3

REPORT INFORMATION
  Report Type: 
  Country: None (occurrence: None)
  Receive Date: 20110922
  Receipt Date: 20110916
  Transmission Date: 20111222
  Serious: Yes (Hospitalization)
  Sender: FDA-Public Use
  Company Number: SE-PFIZER INC-2011219425

PATIENT
  Sex: Male

DRUGS (2)
  1. EFFEXOR [Suspect]
     Indication: ANXIETY
     Dosage: 300 MG, 1X/DAY
     Route: 064
  2. TRANDATE [Concomitant]
     Dosage: UNK
     Route: 064

REACTIONS (11)
  - ACIDOSIS [None]
  - AGITATION NEONATAL [None]
  - MUSCLE TWITCHING [None]
  - HYPERTONIA [None]
  - MATERNAL EXPOSURE DURING PREGNANCY [None]
  - MUSCLE CONTRACTIONS INVOLUNTARY [None]
  - CYANOSIS [None]
  - MATERNAL DRUGS AFFECTING FOETUS [None]
  - BRADYCARDIA [None]
  - TREMOR [None]
  - PULMONARY HYPERTENSION [None]
